FAERS Safety Report 7764032-8 (Version None)
Quarter: 2011Q3

REPORT INFORMATION
  Report Type: 
  Country: None (occurrence: None)
  Receive Date: 20110921
  Receipt Date: 20110916
  Transmission Date: 20111222
  Serious: No
  Sender: FDA-Public Use
  Company Number: US-PFIZER INC-2011220027

PATIENT
  Sex: Female

DRUGS (3)
  1. LISINOPRIL [Suspect]
     Dosage: UNK
  2. ALISKIREN [Suspect]
     Dosage: UNK
  3. AMLODIPINE BESYLATE [Suspect]
     Dosage: UNK

REACTIONS (1)
  - GAIT DISTURBANCE [None]
